FAERS Safety Report 13144074 (Version 1)
Quarter: 2017Q1

REPORT INFORMATION
  Report Type: Spontaneous
  Country: US (occurrence: US)
  Receive Date: 20170124
  Receipt Date: 20170124
  Transmission Date: 20170428
  Serious: No
  Sender: FDA-Public Use
  Company Number: US-PFIZER INC-2017031018

PATIENT
  Age: 30 Year
  Sex: Female
  Weight: 57 kg

DRUGS (6)
  1. LYRICA [Suspect]
     Active Substance: PREGABALIN
     Dosage: 100 MG, 3X/DAY(50MG CAPSULE 2 IN THE MORNING, 2 IN THE AFTERNOON, AND 2 AT NIGHT)
  2. LYRICA [Suspect]
     Active Substance: PREGABALIN
     Dosage: 250 MG, DAILY (50MG CAPSULE 2 IN THE MORNING, 1 IN THE AFTERNOON, AND 2 AT NIGHT)
     Dates: end: 201608
  3. LYRICA [Suspect]
     Active Substance: PREGABALIN
     Dosage: 100 MG, 2X/DAY(50MG CAPSULE 2 IN THE MORNING AND 2 AT NIGHT)
  4. HYDROCODONE [Concomitant]
     Active Substance: HYDROCODONE
     Indication: PAIN
     Dosage: 7.5/3.25 MG, AS NEEDED UP TO 2 A DAY
     Dates: start: 201604
  5. LYRICA [Suspect]
     Active Substance: PREGABALIN
     Indication: SPINAL CORD INJURY
     Dosage: 50 MG, 2X/DAY
     Dates: start: 2016
  6. LYRICA [Suspect]
     Active Substance: PREGABALIN
     Dosage: UNK, 2X/DAY (50MG CAPSULE 2 IN THE MORNING AND 1 AT NIGHT)

REACTIONS (3)
  - Drug effect incomplete [Unknown]
  - Drug dose omission [Not Recovered/Not Resolved]
  - Hallucination [Recovered/Resolved]

NARRATIVE: CASE EVENT DATE: 2016
